FAERS Safety Report 12446648 (Version 2)
Quarter: 2016Q2

REPORT INFORMATION
  Report Type: Report from Study
  Country: US (occurrence: US)
  Receive Date: 20160608
  Receipt Date: 20160610
  Transmission Date: 20160815
  Serious: Yes (Other)
  Sender: FDA-Public Use
  Company Number: US-UCBSA-2016017632

PATIENT
  Sex: Female
  Weight: 67.12 kg

DRUGS (5)
  1. PROGESTERONE. [Concomitant]
     Active Substance: PROGESTERONE
     Indication: ORAL CONTRACEPTION
     Dosage: UNK
  2. CERTOLIZUMAB PEGOL CD [Suspect]
     Active Substance: CERTOLIZUMAB PEGOL
     Indication: CROHN^S DISEASE
     Dosage: 400 MG, UNK
     Dates: start: 20110819, end: 201411
  3. 6-MP [Concomitant]
     Active Substance: MERCAPTOPURINE
     Indication: PRODUCT USED FOR UNKNOWN INDICATION
     Dosage: UNK
     Dates: start: 201412
  4. REMICADE [Concomitant]
     Active Substance: INFLIXIMAB
     Indication: PRODUCT USED FOR UNKNOWN INDICATION
     Dosage: UNK
     Dates: start: 201412
  5. HYDROCHLOROTHIAZIDE. [Concomitant]
     Active Substance: HYDROCHLOROTHIAZIDE
     Indication: PRODUCT USED FOR UNKNOWN INDICATION

REACTIONS (2)
  - Abortion spontaneous [Recovered/Resolved]
  - Pregnancy [Unknown]

NARRATIVE: CASE EVENT DATE: 2016
